FAERS Safety Report 7558792-9 (Version None)
Quarter: 2011Q2

REPORT INFORMATION
  Report Type: 
  Country: None (occurrence: None)
  Receive Date: 20110621
  Receipt Date: 20110613
  Transmission Date: 20111010
  Serious: Yes (Other)
  Sender: FDA-Public Use
  Company Number: US-BIOGENIDEC-2009BI033709

PATIENT
  Age: 32 Year
  Sex: Male
  Weight: 73 kg

DRUGS (2)
  1. AVONEX [Suspect]
     Route: 030
     Dates: start: 20030801
  2. AVONEX [Suspect]
     Indication: MULTIPLE SCLEROSIS
     Route: 030
     Dates: start: 19970731, end: 20030801

REACTIONS (2)
  - CONVULSION [None]
  - FALL [None]
